FAERS Safety Report 9499509 (Version 2)
Quarter: 2013Q3

REPORT INFORMATION
  Report Type: Spontaneous
  Country: US (occurrence: US)
  Receive Date: 20130905
  Receipt Date: 20130916
  Transmission Date: 20140515
  Serious: Yes (Hospitalization)
  Sender: FDA-Public Use
  Company Number: US-BRISTOL-MYERS SQUIBB COMPANY-19238633

PATIENT
  Age: 64 Year
  Sex: Male

DRUGS (11)
  1. COUMADIN [Suspect]
     Indication: DEEP VEIN THROMBOSIS
     Route: 065
  2. BEVACIZUMAB [Suspect]
     Indication: COLORECTAL CANCER METASTATIC
     Dosage: MOST RECENT DOSE PRIOR TO SAE :30JUL13
     Route: 065
     Dates: start: 20130522
  3. IRINOTECAN [Suspect]
     Indication: COLORECTAL CANCER METASTATIC
     Dosage: MOST RECENT DOSE PRIOR TO SAE :30JUL13
     Route: 065
     Dates: start: 20130522
  4. FLUOROURACIL [Suspect]
     Indication: COLORECTAL CANCER METASTATIC
     Dosage: MOST RECENT DOSE PRIOR TO SAE :30JUL13?1920MG/M2-IV?22MAY13
     Route: 040
     Dates: start: 20130522
  5. CALCIUM FOLINATE [Suspect]
     Indication: COLORECTAL CANCER METASTATIC
     Dosage: MOST RECENT DOSE PRIOR TO SAE :30JUL13
     Route: 065
     Dates: start: 20130522
  6. MAGNESIUM OXIDE [Concomitant]
     Dosage: TABLET
     Route: 048
  7. OMEPRAZOLE [Concomitant]
  8. POTASSIUM CHLORIDE [Concomitant]
     Dosage: IVPB PREMIX 10MEQ?LIQUID 20MEQ?ORAL
     Route: 042
  9. LOVENOX [Concomitant]
  10. PREDNISONE [Concomitant]
  11. GLUCAGON [Concomitant]

REACTIONS (1)
  - Epistaxis [Recovered/Resolved with Sequelae]
